FAERS Safety Report 10258978 (Version 2)
Quarter: 2014Q3

REPORT INFORMATION
  Report Type: Spontaneous
  Country: US (occurrence: US)
  Receive Date: 20140625
  Receipt Date: 20140924
  Transmission Date: 20150326
  Serious: Yes (Other)
  Sender: FDA-Public Use
  Company Number: US-GLAXOSMITHKLINE-A1078297A

PATIENT
  Age: 62 Year
  Sex: Female

DRUGS (6)
  1. SYNTHROID [Concomitant]
     Active Substance: LEVOTHYROXINE SODIUM
  2. DIGOXIN. [Concomitant]
     Active Substance: DIGOXIN
  3. BENLYSTA [Suspect]
     Active Substance: BELIMUMAB
     Indication: SYSTEMIC LUPUS ERYTHEMATOSUS
     Route: 065
     Dates: start: 201311, end: 201402
  4. TOPROL XL [Concomitant]
     Active Substance: METOPROLOL SUCCINATE
  5. PREDNISONE. [Concomitant]
     Active Substance: PREDNISONE
  6. IMURAN [Concomitant]
     Active Substance: AZATHIOPRINE

REACTIONS (10)
  - Chest pain [Recovered/Resolved]
  - Respiratory tract infection [Recovered/Resolved]
  - Malaise [Recovered/Resolved]
  - Nasal discomfort [Recovered/Resolved]
  - Upper respiratory tract infection [Recovered/Resolved]
  - Toothache [Recovered/Resolved]
  - Sinusitis [Recovered/Resolved]
  - Nasopharyngitis [Recovered/Resolved]
  - Cough [Recovered/Resolved]
  - Ocular discomfort [Recovered/Resolved]

NARRATIVE: CASE EVENT DATE: 201312
